FAERS Safety Report 9529000 (Version 1)
Quarter: 2013Q3

REPORT INFORMATION
  Report Type: Spontaneous
  Country: US (occurrence: US)
  Receive Date: 20130917
  Receipt Date: 20130917
  Transmission Date: 20140515
  Serious: No
  Sender: FDA-Public Use
  Company Number: US-PFIZER INC-2013264596

PATIENT
  Age: 64 Year
  Sex: Male
  Weight: 79.4 kg

DRUGS (3)
  1. ATORVASTATIN CALCIUM [Suspect]
     Indication: BLOOD CHOLESTEROL INCREASED
     Dosage: 20MG TABLET, DAILY
  2. LIPITOR [Suspect]
     Indication: BLOOD CHOLESTEROL INCREASED
     Dosage: 20 MG, DAILY
     Dates: start: 2005
  3. GLEEVEC [Concomitant]
     Dosage: 400 MG, UNK

REACTIONS (5)
  - Poor quality drug administered [Unknown]
  - Product quality issue [Unknown]
  - Discomfort [Unknown]
  - Myalgia [Recovered/Resolved]
  - Fatigue [Recovered/Resolved]
